FAERS Safety Report 20057832 (Version 2)
Quarter: 2021Q4

REPORT INFORMATION
  Report Type: Spontaneous
  Country: US (occurrence: US)
  Receive Date: 20211111
  Receipt Date: 20211119
  Transmission Date: 20220303
  Serious: No
  Sender: FDA-Public Use
  Company Number: US-GW PHARMA-202111USGW05443

PATIENT

DRUGS (2)
  1. EPIDIOLEX [Suspect]
     Active Substance: CANNABIDIOL
     Indication: Epilepsy
     Dosage: 250 MG, FREQUENCY NOT REPORTED
     Route: 048
     Dates: start: 20210618
  2. EPIDIOLEX [Suspect]
     Active Substance: CANNABIDIOL
     Indication: Epilepsy

REACTIONS (2)
  - Seizure [Unknown]
  - Insomnia [Unknown]

NARRATIVE: CASE EVENT DATE: 20210101
